FAERS Safety Report 8488634-9 (Version None)
Quarter: 2012Q3

REPORT INFORMATION
  Report Type: 
  Country: None (occurrence: None)
  Receive Date: 20120705
  Receipt Date: 20120702
  Transmission Date: 20120928
  Serious: Yes (Death, Hospitalization)
  Sender: FDA-Public Use
  Company Number: KR-BAYER-2012-065147

PATIENT
  Age: 55 Year
  Sex: Male

DRUGS (3)
  1. PLACEBO [Suspect]
     Indication: HEPATIC NEOPLASM MALIGNANT
     Dosage: UNK
     Route: 048
     Dates: start: 20091009, end: 20091026
  2. SORAFENIB (RAF KINASE INHIBITOR) [Suspect]
     Indication: HEPATIC NEOPLASM MALIGNANT
     Dosage: 800 MG, QD
     Route: 048
     Dates: start: 20091009, end: 20091026
  3. LAMIVUDINE [Concomitant]
     Dosage: UNK
     Dates: start: 20090925

REACTIONS (3)
  - PYREXIA [None]
  - CARDIOPULMONARY FAILURE [None]
  - THROMBOCYTOPENIA [None]
